FAERS Safety Report 6035795-7 (Version None)
Quarter: 2009Q1

REPORT INFORMATION
  Report Type: 
  Country: None (occurrence: None)
  Receive Date: 20090113
  Receipt Date: 20090105
  Transmission Date: 20090719
  Serious: Yes (Hospitalization)
  Sender: FDA-Public Use
  Company Number: GB-ROCHE-599981

PATIENT
  Sex: Female
  Weight: 115.6 kg

DRUGS (8)
  1. ORLISTAT [Suspect]
     Indication: OBESITY
     Route: 048
     Dates: start: 20080729
  2. GABAPENTIN [Concomitant]
     Dosage: WAS GIVEN LONG TERM.
     Route: 048
  3. DOXAZOSIN MESYLATE [Concomitant]
     Dosage: WAS GIVEN LONG TERM.
     Route: 048
  4. ENALAPRIL MALEATE [Concomitant]
     Dosage: WAS GIVEN LONG TERM.
     Route: 048
  5. LEVOTHYROXINE SODIUM [Concomitant]
     Indication: HYPOTHYROIDISM
     Dosage: WAS GIVEN LONG TERM.
     Route: 048
  6. OMEPRAZOLE [Concomitant]
     Dosage: WAS GIVEN LONG TERM.
     Route: 048
  7. SIMVASTATIN [Concomitant]
     Dosage: WAS GIVEN LONG TERM.
     Route: 048
  8. ACETAMINOPHEN [Concomitant]
     Indication: PAIN
     Dosage: WAS GIVEN LONG TERM.
     Route: 048

REACTIONS (3)
  - DEHYDRATION [None]
  - DIZZINESS [None]
  - MALAISE [None]
